FAERS Safety Report 7307996-9 (Version None)
Quarter: 2011Q1

REPORT INFORMATION
  Report Type: 
  Country: None (occurrence: None)
  Receive Date: 20110223
  Receipt Date: 20100412
  Transmission Date: 20110831
  Serious: Yes (Other)
  Sender: FDA-Public Use
  Company Number: AT-ROCHE-698119

PATIENT
  Age: 29 Year
  Sex: Male

DRUGS (1)
  1. PROXEN [Suspect]
     Indication: PAIN
     Dosage: DRUG REPORTED AS PROXEN 500 MG (NAPROXEN) FLIM COATED TABLET.
     Route: 048
     Dates: start: 20100316, end: 20100316

REACTIONS (3)
  - DRUG ERUPTION [None]
  - DYSPNOEA [None]
  - EYELID OEDEMA [None]
